FAERS Safety Report 9149356 (Version 3)
Quarter: 2016Q1

REPORT INFORMATION
  Report Type: Spontaneous
  Country: IT (occurrence: IT)
  Receive Date: 20130308
  Receipt Date: 20160218
  Transmission Date: 20160526
  Serious: Yes (Hospitalization, Other)
  Sender: FDA-Public Use
  Company Number: IT-BRISTOL-MYERS SQUIBB COMPANY-17430661

PATIENT
  Age: 37 Year
  Sex: Female

DRUGS (7)
  1. CORTONE ACETATE [Concomitant]
     Indication: PRODUCT USED FOR UNKNOWN INDICATION
     Dosage: CORTONE ACETATE 25 MG TABLETS
     Route: 065
  2. DOXORUBICIN HCL [Suspect]
     Active Substance: DOXORUBICIN HYDROCHLORIDE
     Indication: ADRENOCORTICAL CARCINOMA
     Dosage: 1 DF: 40MG/MQ
     Route: 042
     Dates: start: 20121214, end: 20121227
  3. BRIPLATIN [Suspect]
     Active Substance: CISPLATIN
     Indication: ADRENOCORTICAL CARCINOMA
     Dosage: 1 DF: 40MG/MQ
     Route: 042
     Dates: start: 20121214, end: 20121227
  4. SELEPARINA [Concomitant]
     Active Substance: NADROPARIN CALCIUM
     Indication: PRODUCT USED FOR UNKNOWN INDICATION
     Dosage: 3800 IU, UNK
     Route: 065
  5. EUTIROX [Concomitant]
     Active Substance: LEVOTHYROXINE SODIUM
     Indication: PRODUCT USED FOR UNKNOWN INDICATION
     Dosage: FORM :EUTIROX ?75 MCG TABLETS
     Route: 065
  6. VEPESID [Suspect]
     Active Substance: ETOPOSIDE
     Indication: ADRENOCORTICAL CARCINOMA
     Dosage: 1 DF: 100MG/MQ
     Route: 042
     Dates: start: 20121214, end: 20121227
  7. MITOTANE [Concomitant]
     Active Substance: MITOTANE
     Indication: PRODUCT USED FOR UNKNOWN INDICATION
     Route: 065

REACTIONS (2)
  - Pulmonary embolism [Recovered/Resolved]
  - Product use issue [Unknown]

NARRATIVE: CASE EVENT DATE: 20121227
